FAERS Safety Report 9865299 (Version 1)
Quarter: 2014Q1

REPORT INFORMATION
  Report Type: Spontaneous
  Country: AU (occurrence: AU)
  Receive Date: 20140203
  Receipt Date: 20140203
  Transmission Date: 20141002
  Serious: Yes (Other)
  Sender: FDA-Public Use
  Company Number: AU-ABBVIE-14P-008-1193503-00

PATIENT
  Age: 71 Year
  Sex: Male

DRUGS (1)
  1. LUPRON DEPOT [Suspect]
     Indication: PRODUCT USED FOR UNKNOWN INDICATION
     Dates: start: 20121207

REACTIONS (3)
  - Incontinence [Not Recovered/Not Resolved]
  - Nasal cavity cancer [Not Recovered/Not Resolved]
  - Perineal pain [Not Recovered/Not Resolved]
